FAERS Safety Report 5084532-1 (Version None)
Quarter: 2006Q3

REPORT INFORMATION
  Report Type: 
  Country: None (occurrence: None)
  Receive Date: 20060821
  Receipt Date: 20060725
  Transmission Date: 20061208
  Serious: Yes (Other)
  Sender: FDA-Public Use
  Company Number: US-MERCK-0607USA05085

PATIENT
  Age: 49 Year
  Sex: Male

DRUGS (2)
  1. COSOPT [Suspect]
     Indication: DETACHED RETINA REPAIR
     Route: 047
     Dates: start: 20050916, end: 20060508
  2. COSOPT [Suspect]
     Indication: OCULAR HYPERTENSION
     Route: 047
     Dates: start: 20050916, end: 20060508

REACTIONS (3)
  - CATARACT [None]
  - EYE IRRITATION [None]
  - OCULAR HYPERAEMIA [None]
